FAERS Safety Report 6498818 (Version 1)
Quarter: 2020Q3

REPORT INFORMATION
  Report Type: Spontaneous
  Country: US (occurrence: US)
  Receive Date: 20071213
  Receipt Date: 20071213
  Transmission Date: 20201105
  Serious: No
  Sender: FDA-Public Use
  Company Number: US-AMGEN-KDL233353

PATIENT
  Age: 41 Year
  Sex: Female

DRUGS (5)
  1. ENBREL [Suspect]
     Active Substance: ETANERCEPT
     Indication: RHEUMATOID ARTHRITIS
     Route: 058
     Dates: start: 20070501
  2. SALSALATE. [Suspect]
     Active Substance: SALSALATE
  3. DURAGESIC [Concomitant]
     Active Substance: FENTANYL
  4. METHOTREXATE. [Concomitant]
     Active Substance: METHOTREXATE
     Route: 048
     Dates: start: 20060701
  5. FLEXERIL [Concomitant]
     Active Substance: CYCLOBENZAPRINE HYDROCHLORIDE

REACTIONS (4)
  - Swelling [Unknown]
  - Rash [Recovered/Resolved]
  - Rash pruritic [Unknown]
  - Rash erythematous [Unknown]

NARRATIVE: CASE EVENT DATE: 20070705
